FAERS Safety Report 21323606 (Version 2)
Quarter: 2022Q3

REPORT INFORMATION
  Report Type: Report from Study
  Country: GB (occurrence: GB)
  Receive Date: 20220912
  Receipt Date: 20220926
  Transmission Date: 20221027
  Serious: Yes (Hospitalization)
  Sender: FDA-Public Use
  Company Number: GB-ELI_LILLY_AND_COMPANY-GB202209000333

PATIENT
  Age: 30 Year
  Sex: Male
  Weight: 64.7 kg

DRUGS (5)
  1. OLUMIANT [Suspect]
     Active Substance: BARICITINIB
     Indication: Dermatitis atopic
     Dosage: 4 MG, DAILY
     Route: 048
     Dates: start: 20210329, end: 202204
  2. BECLOMETHASONE DIPROPIONATE [Concomitant]
     Active Substance: BECLOMETHASONE DIPROPIONATE
     Indication: Asthma
     Dosage: UNK, UNKNOWN
     Route: 065
     Dates: start: 20191001
  3. ALBUTEROL SULFATE [Concomitant]
     Active Substance: ALBUTEROL SULFATE
     Indication: Asthma
     Dosage: UNK UNK, UNKNOWN
     Route: 065
     Dates: start: 20191001
  4. ERYTHROMYCIN [Concomitant]
     Active Substance: ERYTHROMYCIN
     Indication: Product used for unknown indication
     Dosage: UNK, UNKNOWN
  5. CLARITHROMYCIN [Concomitant]
     Active Substance: CLARITHROMYCIN
     Indication: Product used for unknown indication

REACTIONS (5)
  - Eczema [Recovered/Resolved]
  - Crohn^s disease [Recovered/Resolved]
  - Rash [Recovered/Resolved]
  - Exposure to SARS-CoV-2 [Unknown]
  - Staphylococcal bacteraemia [Unknown]

NARRATIVE: CASE EVENT DATE: 20220420
